FAERS Safety Report 6522210-X (Version None)
Quarter: 2009Q4

REPORT INFORMATION
  Report Type: 
  Country: None (occurrence: None)
  Receive Date: 20091222
  Receipt Date: 20091215
  Transmission Date: 20100525
  Serious: Yes (Hospitalization, Other)
  Sender: FDA-Public Use
  Company Number: FABR-1000995

PATIENT
  Age: 50 Year
  Sex: Male
  Weight: 54.5 kg

DRUGS (1)
  1. FABRAZYME (AGALSIDASE BETA) POWDER SOLUTION  INFUSION [Suspect]
     Indication: FABRY'S DISEASE
     Dosage: 55 MG, Q2W, INTRAVENOUS
     Route: 042
     Dates: start: 20050601

REACTIONS (1)
  - RENAL CANCER [None]
